FAERS Safety Report 13033838 (Version 1)
Quarter: 2016Q4

REPORT INFORMATION
  Report Type: Spontaneous
  Country: US (occurrence: US)
  Receive Date: 20161215
  Receipt Date: 20161215
  Transmission Date: 20170207
  Serious: Yes (Other)
  Sender: FDA-Public Use
  Company Number: None

PATIENT
  Age: 73 Year
  Sex: Male

DRUGS (1)
  1. ZYTIGA [Suspect]
     Active Substance: ABIRATERONE ACETATE
     Indication: PROSTATE CANCER
     Route: 048
     Dates: start: 20150929

REACTIONS (10)
  - Arthralgia [None]
  - Gastric pH decreased [None]
  - Pain in extremity [None]
  - Myalgia [None]
  - Hot flush [None]
  - Dysgeusia [None]
  - Paraesthesia [None]
  - Parosmia [None]
  - Nausea [None]
  - Rhinorrhoea [None]

NARRATIVE: CASE EVENT DATE: 20150929
